FAERS Safety Report 8277348-6 (Version None)
Quarter: 2012Q2

REPORT INFORMATION
  Report Type: 
  Country: None (occurrence: None)
  Receive Date: 20120412
  Receipt Date: 20120407
  Transmission Date: 20120825
  Serious: Yes (Other)
  Sender: FDA-Public Use
  Company Number: US-PFIZER INC-2012087585

PATIENT
  Sex: Male
  Weight: 104 kg

DRUGS (4)
  1. TAMSULOSIN [Concomitant]
     Dosage: UNK
  2. SERTRALINE [Concomitant]
     Dosage: 50 MG, UNK
  3. LISINOPRIL [Concomitant]
     Dosage: 10 MG, UNK
  4. TOVIAZ [Suspect]
     Indication: DYSURIA
     Dosage: 4 MG, 1X/DAY
     Route: 048
     Dates: start: 20120405

REACTIONS (1)
  - DYSURIA [None]
